FAERS Safety Report 8905510 (Version 3)
Quarter: 2013Q4

REPORT INFORMATION
  Report Type: Report from Study
  Country: US (occurrence: US)
  Receive Date: 20121113
  Receipt Date: 20131227
  Transmission Date: 20140711
  Serious: Yes (Other)
  Sender: FDA-Public Use
  Company Number: US-US-EMD SERONO, INC.-7172640

PATIENT
  Age: 62 Year
  Sex: Female

DRUGS (2)
  1. REBIF [Suspect]
     Indication: MULTIPLE SCLEROSIS
     Route: 058
     Dates: start: 20070507
  2. REBIF [Suspect]
     Route: 058

REACTIONS (12)
  - Intervertebral disc compression [Recovering/Resolving]
  - Nerve compression [Recovering/Resolving]
  - Haemoglobin decreased [Recovering/Resolving]
  - Haematocrit decreased [Recovering/Resolving]
  - Red blood cell count decreased [Recovering/Resolving]
  - Fall [Recovering/Resolving]
  - Weight decreased [Unknown]
  - Vitamin B12 decreased [Not Recovered/Not Resolved]
  - Hair colour changes [Unknown]
  - Balance disorder [Recovering/Resolving]
  - Procedural pain [Not Recovered/Not Resolved]
  - Injection site pain [Not Recovered/Not Resolved]
